FAERS Safety Report 21565036 (Version 1)
Quarter: 2022Q4

REPORT INFORMATION
  Report Type: Spontaneous
  Country: US (occurrence: None)
  Receive Date: 20221107
  Receipt Date: 20221107
  Transmission Date: 20230113
  Serious: Yes (Hospitalization)
  Sender: FDA-Public Use
  Company Number: None

PATIENT
  Age: 71 Year
  Sex: Male
  Weight: 67.4 kg

DRUGS (18)
  1. TEMOZOLOMIDE [Suspect]
     Active Substance: TEMOZOLOMIDE
     Indication: Brain neoplasm malignant
     Dosage: FREQUENCY : DAILY;?
     Route: 048
     Dates: start: 20221025
  2. MEKINIST [Suspect]
     Active Substance: TRAMETINIB DIMETHYL SULFOXIDE
     Indication: Brain neoplasm malignant
     Dosage: FREQUENCY : DAILY;?
     Route: 048
     Dates: start: 20221025
  3. ALLOPURINOL [Concomitant]
     Active Substance: ALLOPURINOL
  4. ATORVASTATIN [Concomitant]
  5. AVASTIN [Concomitant]
  6. BOSWELLIA [Concomitant]
  7. COPPER GLUCONATE [Concomitant]
  8. CURCUMIN [Concomitant]
  9. DABRAFENIB [Concomitant]
  10. DISULFIRAM [Concomitant]
  11. KLOR-CON [Concomitant]
  12. LOSARTAN [Concomitant]
  13. MAGNESIUM CITRATE [Concomitant]
  14. METOCLOPRAMIDE [Concomitant]
  15. ONDANSETRON [Concomitant]
  16. PROBIOTIC [Concomitant]
  17. TAFINLAR [Concomitant]
  18. VITAMIN D3 [Concomitant]

REACTIONS (1)
  - Seizure [None]
